FAERS Safety Report 20830512 (Version 3)
Quarter: 2023Q1

REPORT INFORMATION
  Report Type: Spontaneous
  Country: US (occurrence: US)
  Receive Date: 20220514
  Receipt Date: 20230207
  Transmission Date: 20230418
  Serious: No
  Sender: FDA-Public Use
  Company Number: US-BRISTOL-MYERS SQUIBB COMPANY-2022-036161

PATIENT
  Age: 83 Year
  Sex: Female
  Weight: 68.03 kg

DRUGS (3)
  1. REVLIMID [Suspect]
     Active Substance: LENALIDOMIDE
     Indication: Plasma cell myeloma
     Dosage: 14D ON 7D OFF
     Route: 048
  2. REVLIMID [Suspect]
     Active Substance: LENALIDOMIDE
     Dosage: 14 DAYS ON 7 DAYS OFF
     Route: 048
     Dates: start: 20220203
  3. REVLIMID [Suspect]
     Active Substance: LENALIDOMIDE
     Dosage: FREQ - 2W, 1W OFF
     Route: 048

REACTIONS (5)
  - Back pain [Unknown]
  - Peripheral swelling [Recovering/Resolving]
  - Lethargy [Unknown]
  - Fatigue [Unknown]
  - Off label use [Unknown]
